FAERS Safety Report 5947277-9 (Version None)
Quarter: 2008Q4

REPORT INFORMATION
  Report Type: 
  Country: None (occurrence: None)
  Receive Date: 20081110
  Receipt Date: 20081103
  Transmission Date: 20090506
  Serious: Yes (Other)
  Sender: FDA-Public Use
  Company Number: US-B.I. PHARMACEUTICALS,INC./RIDGEFIELD-2008-BP-16848PF

PATIENT
  Sex: Female
  Weight: 65 kg

DRUGS (14)
  1. SPIRIVA [Suspect]
     Route: 055
  2. LIPITOR [Suspect]
     Indication: BLOOD CHOLESTEROL INCREASED
     Dosage: 20MG
     Route: 048
     Dates: start: 20030101
  3. DIGOXIN [Concomitant]
  4. LASIX [Concomitant]
  5. LISINOPRIL [Concomitant]
  6. NEXIUM [Concomitant]
  7. COUMADIN [Concomitant]
  8. UNSPECIFIED INHALER [Concomitant]
  9. FUROSEMIDE [Concomitant]
  10. ZETIA [Concomitant]
  11. WARFARIN SODIUM [Concomitant]
  12. FISH OIL [Concomitant]
  13. PRESERVISION [Concomitant]
  14. NASONEX [Concomitant]

REACTIONS (8)
  - APHONIA [None]
  - ARTHRALGIA [None]
  - DRUG INEFFECTIVE [None]
  - DYSPHONIA [None]
  - MACULAR DEGENERATION [None]
  - MALAISE [None]
  - MUSCULOSKELETAL DISCOMFORT [None]
  - WRONG TECHNIQUE IN DRUG USAGE PROCESS [None]
